FAERS Safety Report 7991523-7 (Version None)
Quarter: 2011Q4

REPORT INFORMATION
  Report Type: 
  Country: None (occurrence: None)
  Receive Date: 20111219
  Receipt Date: 20111216
  Transmission Date: 20120403
  Serious: Yes (Death, Hospitalization)
  Sender: FDA-Public Use
  Company Number: AU-B.I. PHARMACEUTICALS,INC./RIDGEFIELD-2011-AU-02496AU

PATIENT
  Sex: Female

DRUGS (7)
  1. DIGOXIN [Concomitant]
  2. PREDNISOLONE [Concomitant]
  3. CALCIUM CARBONATE [Concomitant]
  4. FUROSEMIDE [Concomitant]
  5. ZOLEDRONOC ACID [Concomitant]
  6. LIPITOR [Concomitant]
  7. PRADAXA [Suspect]
     Indication: CEREBROVASCULAR ACCIDENT PROPHYLAXIS
     Dosage: 220 MG
     Dates: start: 20110620

REACTIONS (2)
  - HOSPITALISATION [None]
  - DEATH [None]
